FAERS Safety Report 8360200-5 (Version None)
Quarter: 2012Q1

REPORT INFORMATION
  Report Type: 
  Country: None (occurrence: None)
  Receive Date: 20120323
  Receipt Date: 20111130
  Transmission Date: 20120608
  Serious: Yes (Other)
  Sender: FDA-Public Use
  Company Number: 163-21880-11101521

PATIENT
  Age: 79 Year
  Sex: Female

DRUGS (27)
  1. ASPIRIN [Concomitant]
  2. DIFLUCAN [Concomitant]
  3. LANTUS [Concomitant]
  4. OXYBUTYNIN [Concomitant]
  5. ACETAMINOPHEN [Concomitant]
  6. IBUPROFEN [Concomitant]
  7. METOPROLOL [Concomitant]
  8. CIPROFLOXACIN [Concomitant]
  9. FOSAMAX [Concomitant]
  10. PAMIDRONATE DISODIUM [Concomitant]
  11. REVLIMID [Suspect]
     Indication: MULTIPLE MYELOMA
     Dosage: 10 MG, DAILY FOR 21 DAYS, 3 WEEKS ON + 1 WK OFF, PO
     Route: 048
     Dates: start: 20110126, end: 20110101
  12. CLONIDINE [Concomitant]
  13. PRILOSEC [Concomitant]
  14. PREDNISONE TAB [Concomitant]
  15. ACARBOSE [Concomitant]
  16. ALKERAN [Concomitant]
  17. FUROSEMIDE [Concomitant]
  18. LISINOPRIL [Concomitant]
  19. ALENDRON (ALENDRONIC ACID) [Concomitant]
  20. DOXAZOSIN MESYLATE [Concomitant]
  21. LOSARTAN POTASSIUM [Concomitant]
  22. LOVASTATIN [Concomitant]
  23. GLIPIZIDE [Concomitant]
  24. HYDROCHLOROTHIAZIDE [Concomitant]
  25. ERGOCALCIFEROL [Concomitant]
  26. PROCRIT [Concomitant]
  27. TEMAZEPRAM [Concomitant]

REACTIONS (7)
  - ASTHENIA [None]
  - RED BLOOD CELL COUNT DECREASED [None]
  - FATIGUE [None]
  - HEADACHE [None]
  - DYSPNOEA EXERTIONAL [None]
  - ABNORMAL FAECES [None]
  - MALAISE [None]
